FAERS Safety Report 5622753-7 (Version None)
Quarter: 2008Q1

REPORT INFORMATION
  Report Type: 
  Country: None (occurrence: None)
  Receive Date: 20080212
  Receipt Date: 20080204
  Transmission Date: 20080703
  Serious: Yes (Life-Threatening)
  Sender: FDA-Public Use
  Company Number: US-BAYER-200813066NA

PATIENT
  Age: 59 Year
  Sex: Male

DRUGS (3)
  1. ULTRAVIST (PHARMACY BULK) [Suspect]
     Indication: COMPUTERISED TOMOGRAM
     Route: 042
     Dates: start: 20080204, end: 20080204
  2. GLUCOPHAGE [Concomitant]
  3. READI-CAT 2 [Concomitant]
     Dates: start: 20080204

REACTIONS (4)
  - CARDIAC ARREST [None]
  - FEELING HOT [None]
  - LOSS OF CONSCIOUSNESS [None]
  - SWELLING [None]
